FAERS Safety Report 12407668 (Version 1)
Quarter: 2016Q2

REPORT INFORMATION
  Report Type: Report from Study
  Country: US (occurrence: US)
  Receive Date: 20160526
  Receipt Date: 20160526
  Transmission Date: 20160815
  Serious: No
  Sender: FDA-Public Use
  Company Number: GXBR2014US001691

PATIENT
  Sex: Male

DRUGS (2)
  1. SOMATROPIN [Suspect]
     Active Substance: SOMATROPIN
     Indication: GROWTH HORMONE DEFICIENCY
     Dosage: 0.16 MG/KG, UNK
     Route: 058
     Dates: start: 20120906
  2. SOMATROPIN [Suspect]
     Active Substance: SOMATROPIN
     Dosage: 0.1 MG/KG, UNK

REACTIONS (2)
  - Hydrocele [Not Recovered/Not Resolved]
  - High density lipoprotein decreased [Not Recovered/Not Resolved]

NARRATIVE: CASE EVENT DATE: 20130116
